FAERS Safety Report 13716294 (Version 2)
Quarter: 2017Q3

REPORT INFORMATION
  Report Type: Spontaneous
  Country: SE (occurrence: SE)
  Receive Date: 20170705
  Receipt Date: 20170728
  Transmission Date: 20171127
  Serious: Yes (Other)
  Sender: FDA-Public Use
  Company Number: SE-SUN PHARMACEUTICAL INDUSTRIES LTD-2017RR-144375

PATIENT
  Sex: Female

DRUGS (4)
  1. SERTRALINE [Suspect]
     Active Substance: SERTRALINE HYDROCHLORIDE
     Indication: IRRITABLE BOWEL SYNDROME
  2. SERTRALINE [Suspect]
     Active Substance: SERTRALINE HYDROCHLORIDE
     Indication: ANTIDEPRESSANT THERAPY
     Dosage: 12.5 MG, HALF THE DOSE
     Route: 048
     Dates: start: 201610, end: 201706
  3. SERTRALINE [Suspect]
     Active Substance: SERTRALINE HYDROCHLORIDE
     Indication: ANTIDEPRESSANT THERAPY
     Dosage: 25 MG
     Route: 048
     Dates: start: 201510, end: 201706
  4. SERTRALINE [Suspect]
     Active Substance: SERTRALINE HYDROCHLORIDE
     Indication: IRRITABLE BOWEL SYNDROME

REACTIONS (8)
  - Restlessness [Unknown]
  - Struck by lightning [Unknown]
  - Influenza like illness [Unknown]
  - Night sweats [Unknown]
  - Nightmare [Unknown]
  - Dizziness [Unknown]
  - Headache [Unknown]
  - Balance disorder [Unknown]
